FAERS Safety Report 5854663-4 (Version None)
Quarter: 2008Q3

REPORT INFORMATION
  Report Type: 
  Country: None (occurrence: None)
  Receive Date: 20080822
  Receipt Date: 20080811
  Transmission Date: 20090109
  Serious: Yes (Other)
  Sender: FDA-Public Use
  Company Number: US-PFIZER INC-2008067364

PATIENT
  Sex: Male
  Weight: 149.7 kg

DRUGS (10)
  1. CHANTIX [Suspect]
     Indication: SMOKING CESSATION THERAPY
  2. ALL OTHER THERAPEUTIC PRODUCTS [Concomitant]
  3. TRAZODONE HCL [Concomitant]
  4. PRILOSEC [Concomitant]
  5. PAXIL [Concomitant]
  6. CLARITIN-D [Concomitant]
  7. DEPAKOTE [Concomitant]
  8. IBUPROFEN [Concomitant]
  9. MIRAPEX [Concomitant]
  10. ATENOLOL [Concomitant]

REACTIONS (1)
  - TACHYCARDIA [None]
